FAERS Safety Report 23862960 (Version 5)
Quarter: 2024Q4

REPORT INFORMATION
  Report Type: Report from Study
  Country: JP (occurrence: JP)
  Receive Date: 20240516
  Receipt Date: 20241021
  Transmission Date: 20250115
  Serious: Yes (Other)
  Sender: ALEXION PHARMACEUTICALS
  Company Number: 2024A110147

PATIENT
  Age: 60 Year
  Weight: 53 kg

DRUGS (97)
  1. CILGAVIMAB\TIXAGEVIMAB [Suspect]
     Active Substance: CILGAVIMAB\TIXAGEVIMAB
     Indication: COVID-19 prophylaxis
     Dosage: DOSE UNKNOWN
  2. CILGAVIMAB\TIXAGEVIMAB [Suspect]
     Active Substance: CILGAVIMAB\TIXAGEVIMAB
     Dosage: DOSE UNKNOWN
  3. CILGAVIMAB\TIXAGEVIMAB [Suspect]
     Active Substance: CILGAVIMAB\TIXAGEVIMAB
     Dosage: DOSE UNKNOWN
  4. CILGAVIMAB\TIXAGEVIMAB [Suspect]
     Active Substance: CILGAVIMAB\TIXAGEVIMAB
     Dosage: DOSE UNKNOWN
  5. CILGAVIMAB\TIXAGEVIMAB [Suspect]
     Active Substance: CILGAVIMAB\TIXAGEVIMAB
     Dosage: TO THE LEFT AND RIGHT BUTTOCKS
  6. CILGAVIMAB\TIXAGEVIMAB [Suspect]
     Active Substance: CILGAVIMAB\TIXAGEVIMAB
     Dosage: TO THE LEFT AND RIGHT BUTTOCKS
  7. CILGAVIMAB\TIXAGEVIMAB [Suspect]
     Active Substance: CILGAVIMAB\TIXAGEVIMAB
     Dosage: TO THE LEFT AND RIGHT BUTTOCKS
  8. CILGAVIMAB\TIXAGEVIMAB [Suspect]
     Active Substance: CILGAVIMAB\TIXAGEVIMAB
     Dosage: TO THE LEFT AND RIGHT BUTTOCKS
  9. FLUCONAZOLE [Suspect]
     Active Substance: FLUCONAZOLE
     Indication: Prophylaxis
     Dosage: DOSE UNKNOWN
  10. FLUCONAZOLE [Suspect]
     Active Substance: FLUCONAZOLE
     Dosage: DOSE UNKNOWN
  11. VONOPRAZAN FUMARATE [Concomitant]
     Active Substance: VONOPRAZAN FUMARATE
     Indication: Prophylaxis
     Dosage: DOSE UNKNOWN
  12. VONOPRAZAN FUMARATE [Concomitant]
     Active Substance: VONOPRAZAN FUMARATE
     Dosage: DOSE UNKNOWN
  13. LINACLOTIDE [Concomitant]
     Active Substance: LINACLOTIDE
     Indication: Prophylaxis
     Dosage: DOSE UNKNOWN
  14. LINACLOTIDE [Concomitant]
     Active Substance: LINACLOTIDE
     Dosage: DOSE UNKNOWN
  15. LINACLOTIDE [Concomitant]
     Active Substance: LINACLOTIDE
     Dosage: DOSE UNKNOWN
  16. LINACLOTIDE [Concomitant]
     Active Substance: LINACLOTIDE
     Dosage: DOSE UNKNOWN
  17. SULFAMETHOXAZOLE\TRIMETHOPRIM [Concomitant]
     Active Substance: SULFAMETHOXAZOLE\TRIMETHOPRIM
     Indication: Prophylaxis
     Dosage: DOSE UNKNOWN
  18. SULFAMETHOXAZOLE\TRIMETHOPRIM [Concomitant]
     Active Substance: SULFAMETHOXAZOLE\TRIMETHOPRIM
     Dosage: DOSE UNKNOWN
  19. SULFAMETHOXAZOLE\TRIMETHOPRIM [Concomitant]
     Active Substance: SULFAMETHOXAZOLE\TRIMETHOPRIM
     Dosage: DOSE UNKNOWN
  20. SULFAMETHOXAZOLE\TRIMETHOPRIM [Concomitant]
     Active Substance: SULFAMETHOXAZOLE\TRIMETHOPRIM
     Dosage: DOSE UNKNOWN
  21. SODIUM GUALENATE MONOHYDRATE [Concomitant]
     Active Substance: SODIUM GUALENATE MONOHYDRATE
     Indication: Prophylaxis
     Dosage: DOSE UNKNOWN, GARGLING AFTER DILUTION
  22. SODIUM GUALENATE MONOHYDRATE [Concomitant]
     Active Substance: SODIUM GUALENATE MONOHYDRATE
     Dosage: DOSE UNKNOWN, GARGLING AFTER DILUTION
  23. HEPARINOID [Concomitant]
     Indication: Prophylaxis
     Dosage: DOSE UNKNOWN
  24. HEPARINOID [Concomitant]
     Dosage: DOSE UNKNOWN
  25. HEPARINOID [Concomitant]
     Dosage: DOSE UNKNOWN
  26. HEPARINOID [Concomitant]
     Dosage: DOSE UNKNOWN
  27. MAGNESIUM OXIDE [Concomitant]
     Active Substance: MAGNESIUM OXIDE
     Indication: Constipation
     Dosage: DOSE UNKNOWN
  28. MAGNESIUM OXIDE [Concomitant]
     Active Substance: MAGNESIUM OXIDE
     Dosage: DOSE UNKNOWN
  29. MAGNESIUM OXIDE [Concomitant]
     Active Substance: MAGNESIUM OXIDE
     Dosage: DOSE UNKNOWN
  30. MAGNESIUM OXIDE [Concomitant]
     Active Substance: MAGNESIUM OXIDE
     Dosage: DOSE UNKNOWN
  31. MAGNESIUM OXIDE [Concomitant]
     Active Substance: MAGNESIUM OXIDE
     Dosage: DOSE UNKNOWN
  32. MAGNESIUM OXIDE [Concomitant]
     Active Substance: MAGNESIUM OXIDE
     Dosage: DOSE UNKNOWN
  33. MAGNESIUM OXIDE [Concomitant]
     Active Substance: MAGNESIUM OXIDE
     Dosage: DOSE UNKNOWN
  34. MAGNESIUM OXIDE [Concomitant]
     Active Substance: MAGNESIUM OXIDE
     Dosage: DOSE UNKNOWN
  35. BETAMETHASONE VALERATE [Concomitant]
     Active Substance: BETAMETHASONE VALERATE
     Indication: Prophylaxis
     Dosage: DOSE UNKNOWN
  36. BETAMETHASONE VALERATE [Concomitant]
     Active Substance: BETAMETHASONE VALERATE
     Dosage: DOSE UNKNOWN
  37. METHOTREXATE [Concomitant]
     Active Substance: METHOTREXATE
     Indication: Diffuse large B-cell lymphoma
     Dosage: DOSE UNKNOWN
     Route: 065
  38. METHOTREXATE [Concomitant]
     Active Substance: METHOTREXATE
     Dosage: DOSE UNKNOWN
  39. METHOTREXATE [Concomitant]
     Active Substance: METHOTREXATE
     Dosage: DOSE UNKNOWN
     Route: 065
  40. METHOTREXATE [Concomitant]
     Active Substance: METHOTREXATE
     Dosage: DOSE UNKNOWN
  41. VONOPRAZAN FUMARATE [Concomitant]
     Active Substance: VONOPRAZAN FUMARATE
     Indication: Prophylaxis
     Dosage: DOSE UNKNOWN
  42. VONOPRAZAN FUMARATE [Concomitant]
     Active Substance: VONOPRAZAN FUMARATE
     Dosage: DOSE UNKNOWN
  43. VONOPRAZAN FUMARATE [Concomitant]
     Active Substance: VONOPRAZAN FUMARATE
     Dosage: DOSE UNKNOWN
  44. VONOPRAZAN FUMARATE [Concomitant]
     Active Substance: VONOPRAZAN FUMARATE
     Dosage: DOSE UNKNOWN
  45. LINZESS [Concomitant]
     Active Substance: LINACLOTIDE
     Indication: Prophylaxis
     Dosage: DOSE UNKNOWN
  46. LINZESS [Concomitant]
     Active Substance: LINACLOTIDE
     Dosage: DOSE UNKNOWN
  47. LINZESS [Concomitant]
     Active Substance: LINACLOTIDE
     Dosage: DOSE UNKNOWN
  48. LINZESS [Concomitant]
     Active Substance: LINACLOTIDE
     Dosage: DOSE UNKNOWN
  49. SODIUM GUALENATE MONOHYDRATE [Concomitant]
     Active Substance: SODIUM GUALENATE MONOHYDRATE
     Indication: Prophylaxis
     Dosage: DOSE UNKNOWN, GARGLING AFTER DILUTION
  50. SODIUM GUALENATE MONOHYDRATE [Concomitant]
     Active Substance: SODIUM GUALENATE MONOHYDRATE
     Dosage: DOSE UNKNOWN, GARGLING AFTER DILUTION
  51. SODIUM GUALENATE MONOHYDRATE [Concomitant]
     Active Substance: SODIUM GUALENATE MONOHYDRATE
     Dosage: DOSE UNKNOWN, GARGLING AFTER DILUTION
  52. SODIUM GUALENATE MONOHYDRATE [Concomitant]
     Active Substance: SODIUM GUALENATE MONOHYDRATE
     Dosage: DOSE UNKNOWN, GARGLING AFTER DILUTION
  53. GLYCOSAMINOGLYCANS [Concomitant]
     Active Substance: GLYCOSAMINOGLYCANS
     Indication: Prophylaxis
     Dosage: DOSE UNKNOWN
  54. GLYCOSAMINOGLYCANS [Concomitant]
     Active Substance: GLYCOSAMINOGLYCANS
     Dosage: DOSE UNKNOWN
  55. RINDERON V [Concomitant]
     Active Substance: BETAMETHASONE VALERATE
     Indication: Prophylaxis
     Dosage: DOSE UNKNOWN
  56. RINDERON V [Concomitant]
     Active Substance: BETAMETHASONE VALERATE
     Dosage: DOSE UNKNOWN
  57. RINDERON V [Concomitant]
     Active Substance: BETAMETHASONE VALERATE
     Dosage: DOSE UNKNOWN
  58. RINDERON V [Concomitant]
     Active Substance: BETAMETHASONE VALERATE
     Dosage: DOSE UNKNOWN
  59. FUROSEMIDE [Concomitant]
     Active Substance: FUROSEMIDE
     Indication: Prophylaxis
     Dosage: DOSE UNKNOWN
     Route: 065
  60. FUROSEMIDE [Concomitant]
     Active Substance: FUROSEMIDE
     Dosage: DOSE UNKNOWN
  61. FUROSEMIDE [Concomitant]
     Active Substance: FUROSEMIDE
     Dosage: DOSE UNKNOWN
     Route: 065
  62. FUROSEMIDE [Concomitant]
     Active Substance: FUROSEMIDE
     Dosage: DOSE UNKNOWN
  63. FLUOROMETHOLONE [Concomitant]
     Active Substance: FLUOROMETHOLONE
     Indication: Prophylaxis
     Dosage: DOSE UNKNOWN
  64. FLUOROMETHOLONE [Concomitant]
     Active Substance: FLUOROMETHOLONE
     Dosage: DOSE UNKNOWN
  65. FLUOROMETHOLONE [Concomitant]
     Active Substance: FLUOROMETHOLONE
     Dosage: DOSE UNKNOWN
  66. FLUOROMETHOLONE [Concomitant]
     Active Substance: FLUOROMETHOLONE
     Dosage: DOSE UNKNOWN
  67. APREPITANT [Concomitant]
     Active Substance: APREPITANT
     Indication: Prophylaxis
     Dosage: DOSE UNKNOWN
  68. APREPITANT [Concomitant]
     Active Substance: APREPITANT
     Dosage: DOSE UNKNOWN
  69. APREPITANT [Concomitant]
     Active Substance: APREPITANT
     Dosage: DOSE UNKNOWN
  70. APREPITANT [Concomitant]
     Active Substance: APREPITANT
     Dosage: DOSE UNKNOWN
  71. PALONOSETRON [Concomitant]
     Active Substance: PALONOSETRON
     Indication: Prophylaxis
     Dosage: DOSE UNKNOWN
     Route: 065
  72. PALONOSETRON [Concomitant]
     Active Substance: PALONOSETRON
     Dosage: DOSE UNKNOWN
  73. PALONOSETRON [Concomitant]
     Active Substance: PALONOSETRON
     Dosage: DOSE UNKNOWN
     Route: 065
  74. PALONOSETRON [Concomitant]
     Active Substance: PALONOSETRON
     Dosage: DOSE UNKNOWN
  75. MESNA [Concomitant]
     Active Substance: MESNA
     Indication: Prophylaxis
     Dosage: DOSE UNKNOWN
     Route: 065
  76. MESNA [Concomitant]
     Active Substance: MESNA
     Dosage: DOSE UNKNOWN
  77. MESNA [Concomitant]
     Active Substance: MESNA
     Dosage: DOSE UNKNOWN
     Route: 065
  78. MESNA [Concomitant]
     Active Substance: MESNA
     Dosage: DOSE UNKNOWN
  79. SOLU-CORTEF [Concomitant]
     Active Substance: HYDROCORTISONE SODIUM SUCCINATE
     Indication: Prophylaxis
     Dosage: DOSE UNKNOWN
     Route: 065
  80. SOLU-CORTEF [Concomitant]
     Active Substance: HYDROCORTISONE SODIUM SUCCINATE
     Dosage: DOSE UNKNOWN
  81. SOLU-CORTEF [Concomitant]
     Active Substance: HYDROCORTISONE SODIUM SUCCINATE
     Dosage: DOSE UNKNOWN
     Route: 065
  82. SOLU-CORTEF [Concomitant]
     Active Substance: HYDROCORTISONE SODIUM SUCCINATE
     Dosage: DOSE UNKNOWN
  83. BILASTINE [Concomitant]
     Active Substance: BILASTINE
     Indication: Prophylaxis
     Dosage: DOSE UNKNOWN
  84. BETAMETHASONE DIPROPIONATE [Concomitant]
     Active Substance: BETAMETHASONE DIPROPIONATE
  85. BETAMETHASONE DIPROPIONATE [Concomitant]
     Active Substance: BETAMETHASONE DIPROPIONATE
     Route: 065
  86. POLARAMINE [Concomitant]
     Active Substance: DEXCHLORPHENIRAMINE MALEATE
     Indication: Prophylaxis
     Dosage: DOSE UNKNOWN
     Route: 065
  87. POLARAMINE [Concomitant]
     Active Substance: DEXCHLORPHENIRAMINE MALEATE
     Dosage: DOSE UNKNOWN
  88. POLARAMINE [Concomitant]
     Active Substance: DEXCHLORPHENIRAMINE MALEATE
     Dosage: DOSE UNKNOWN
     Route: 065
  89. POLARAMINE [Concomitant]
     Active Substance: DEXCHLORPHENIRAMINE MALEATE
     Dosage: DOSE UNKNOWN
  90. PREDNISOLONE [Concomitant]
     Active Substance: PREDNISOLONE
     Indication: Prophylaxis
     Dosage: DOSE UNKNOWN
  91. PREDNISOLONE [Concomitant]
     Active Substance: PREDNISOLONE
     Dosage: DOSE UNKNOWN
  92. DIAMOX SEQUELS [Concomitant]
     Active Substance: ACETAZOLAMIDE
     Indication: Prophylaxis
     Dosage: DOSE UNKNOWN
  93. DIAMOX SEQUELS [Concomitant]
     Active Substance: ACETAZOLAMIDE
     Dosage: DOSE UNKNOWN
  94. ISOVORIN [Concomitant]
     Active Substance: LEUCOVORIN CALCIUM
     Indication: Prophylaxis
     Dosage: DOSE UNKNOWN
     Route: 065
  95. ISOVORIN [Concomitant]
     Active Substance: LEUCOVORIN CALCIUM
     Dosage: DOSE UNKNOWN
  96. ISOVORIN [Concomitant]
     Active Substance: LEUCOVORIN CALCIUM
     Dosage: DOSE UNKNOWN
     Route: 065
  97. ISOVORIN [Concomitant]
     Active Substance: LEUCOVORIN CALCIUM
     Dosage: DOSE UNKNOWN

REACTIONS (7)
  - Rash [Recovered/Resolved]
  - Back pain [Recovered/Resolved]
  - White blood cell count decreased [Recovered/Resolved]
  - Cytokine release syndrome [Recovered/Resolved]
  - Blood potassium increased [Recovered/Resolved]
  - Diffuse large B-cell lymphoma [Recovering/Resolving]
  - Pyrexia [Recovered/Resolved]
